FAERS Safety Report 5207195-0 (Version None)
Quarter: 2007Q1

REPORT INFORMATION
  Report Type: 
  Country: None (occurrence: None)
  Receive Date: 20070112
  Receipt Date: 20070111
  Transmission Date: 20070707
  Serious: Yes (Hospitalization)
  Sender: FDA-Public Use
  Company Number: 8757

PATIENT
  Sex: Female

DRUGS (1)
  1. ALKERAN [Suspect]
     Dosage: 10MG PER DAY

REACTIONS (2)
  - NEUTROPENIA [None]
  - PLATELET COUNT DECREASED [None]
